FAERS Safety Report 10275995 (Version 1)
Quarter: 2014Q3

REPORT INFORMATION
  Report Type: Spontaneous
  Country: US (occurrence: None)
  Receive Date: 20140701
  Receipt Date: 20140701
  Transmission Date: 20150326
  Serious: No
  Sender: FDA-Public Use
  Company Number: None

PATIENT
  Age: 62 Year
  Sex: Male
  Weight: 89.9 kg

DRUGS (2)
  1. SULFAMETHOXAZOLE/TRIMETHOPRIM [Suspect]
     Active Substance: SULFAMETHOXAZOLE\TRIMETHOPRIM
     Indication: INFECTION
     Dosage: 1 TAB?UD?PO
     Route: 048
     Dates: start: 20140401, end: 20140422
  2. EFAVIRENZ [Suspect]
     Active Substance: EFAVIRENZ
     Route: 048
     Dates: start: 20140408, end: 20140422

REACTIONS (2)
  - Stevens-Johnson syndrome [None]
  - Hypotension [None]

NARRATIVE: CASE EVENT DATE: 20140422
